FAERS Safety Report 6044678-8 (Version None)
Quarter: 2009Q1

REPORT INFORMATION
  Report Type: 
  Country: None (occurrence: None)
  Receive Date: 20090120
  Receipt Date: 20081212
  Transmission Date: 20090719
  Serious: Yes (Death, Hospitalization)
  Sender: FDA-Public Use
  Company Number: DE-PFIZER INC-2008159256

PATIENT

DRUGS (8)
  1. BLINDED THERAPY [Suspect]
     Dosage: BLINDED
     Route: 048
     Dates: start: 20050725, end: 20060109
  2. GABAPENTIN [Concomitant]
     Dosage: UNK
     Dates: end: 20060105
  3. OMACOR [Concomitant]
     Dosage: UNK
     Dates: end: 20060105
  4. CARVEDILOL [Concomitant]
     Dosage: UNK
     Dates: end: 20060105
  5. SPIRIVA [Concomitant]
     Dosage: UNK
     Dates: end: 20060105
  6. KATADOLON [Concomitant]
     Dosage: UNK
     Dates: end: 20060105
  7. AROMASIN [Concomitant]
     Dosage: UNK
     Dates: end: 20060105
  8. LIMPTAR N [Concomitant]
     Dosage: UNK
     Dates: end: 20060105

REACTIONS (2)
  - ACUTE MYELOID LEUKAEMIA [None]
  - VASCULITIS [None]
